FAERS Safety Report 19786572 (Version 1)
Quarter: 2021Q3

REPORT INFORMATION
  Report Type: Spontaneous
  Country: CA (occurrence: CA)
  Receive Date: 20210903
  Receipt Date: 20210903
  Transmission Date: 20211014
  Serious: Yes (Other)
  Sender: FDA-Public Use
  Company Number: CA-PURDUE-USA-2020-0197229

PATIENT
  Sex: Male

DRUGS (3)
  1. OXYCONTIN [Suspect]
     Active Substance: OXYCODONE HYDROCHLORIDE
     Indication: PRODUCT USED FOR UNKNOWN INDICATION
     Dosage: 5 MG
     Route: 048
  2. OXYCONTIN [Suspect]
     Active Substance: OXYCODONE HYDROCHLORIDE
     Dosage: 40 MG, BID
     Route: 048
  3. OXYCONTIN [Suspect]
     Active Substance: OXYCODONE HYDROCHLORIDE
     Dosage: 60 MG
     Route: 048

REACTIONS (17)
  - Road traffic accident [Unknown]
  - Sexual dysfunction [Unknown]
  - Drug withdrawal syndrome [Unknown]
  - Drug dependence [Unknown]
  - Learning disability [Unknown]
  - Depression [Unknown]
  - Somnolence [Unknown]
  - Libido decreased [Unknown]
  - Confusional state [Unknown]
  - Fatigue [Unknown]
  - Pollakiuria [Unknown]
  - Constipation [Unknown]
  - Hyperhidrosis [Unknown]
  - Sleep disorder [Unknown]
  - Erectile dysfunction [Unknown]
  - Disturbance in attention [Unknown]
  - Asthenia [Unknown]
